FAERS Safety Report 14245360 (Version 1)
Quarter: 2017Q4

REPORT INFORMATION
  Report Type: Spontaneous
  Country: US (occurrence: US)
  Receive Date: 20171202
  Receipt Date: 20171202
  Transmission Date: 20180321
  Serious: No
  Sender: FDA-Public Use
  Company Number: US-ENDO PHARMACEUTICALS INC-2017-005175

PATIENT
  Sex: Male
  Weight: 124.72 kg

DRUGS (5)
  1. XIAFLEX [Suspect]
     Active Substance: COLLAGENASE CLOSTRIDIUM HISTOLYTICUM
     Indication: PEYRONIE^S DISEASE
     Dosage: UNK UNKNOWN, UNKNOWN (CYCLE 1 INJECTION 1)
     Route: 065
     Dates: start: 20170718, end: 20170718
  2. XIAFLEX [Suspect]
     Active Substance: COLLAGENASE CLOSTRIDIUM HISTOLYTICUM
     Dosage: UNK UNKNOWN, UNKNOWN (CYCLE 1 INJECTION 2)
     Route: 065
     Dates: start: 20170721, end: 20170721
  3. BENTOS [Concomitant]
     Indication: UNEVALUABLE EVENT
  4. XIAFLEX [Suspect]
     Active Substance: COLLAGENASE CLOSTRIDIUM HISTOLYTICUM
     Dosage: UNK UNKNOWN, UNKNOWN (CYCLE 2 INJECTION 1)
     Route: 065
     Dates: start: 20170829, end: 20170829
  5. XIAFLEX [Suspect]
     Active Substance: COLLAGENASE CLOSTRIDIUM HISTOLYTICUM
     Dosage: UNK UNKNOWN, UNKNOWN (CYCLE 2 INJECTION 2)
     Route: 065
     Dates: start: 20170831, end: 20170831

REACTIONS (6)
  - Condition aggravated [Unknown]
  - Penile curvature [Unknown]
  - Incorrect dose administered [Unknown]
  - Penile swelling [Recovered/Resolved]
  - Penile pain [Recovered/Resolved]
  - Penile contusion [Recovered/Resolved]

NARRATIVE: CASE EVENT DATE: 2017
